FAERS Safety Report 11863114 (Version 9)
Quarter: 2016Q2

REPORT INFORMATION
  Report Type: Report from Study
  Country: DE (occurrence: DE)
  Receive Date: 20151223
  Receipt Date: 20160621
  Transmission Date: 20160815
  Serious: Yes (Hospitalization, Other)
  Sender: FDA-Public Use
  Company Number: PHHY2015DE166933

PATIENT
  Sex: Female
  Weight: 68 kg

DRUGS (7)
  1. AFINITOR [Suspect]
     Active Substance: EVEROLIMUS
     Indication: BREAST CANCER METASTATIC
     Dosage: 5 MG, QD
     Route: 048
     Dates: start: 20150320, end: 20150708
  2. AFINITOR [Suspect]
     Active Substance: EVEROLIMUS
     Dosage: 7.5 MG, QD
     Route: 048
     Dates: start: 20150709, end: 20150813
  3. AFINITOR [Suspect]
     Active Substance: EVEROLIMUS
     Dosage: 5 MG, QD
     Route: 048
     Dates: start: 20160110, end: 20160208
  4. EXEMESTANE. [Concomitant]
     Active Substance: EXEMESTANE
     Indication: BREAST CANCER METASTATIC
     Dosage: 25 MG, QD
     Route: 048
     Dates: start: 20150320, end: 20160406
  5. AFINITOR [Suspect]
     Active Substance: EVEROLIMUS
     Dosage: 5 MG, QD
     Route: 048
     Dates: start: 20150814, end: 20150818
  6. AFINITOR [Suspect]
     Active Substance: EVEROLIMUS
     Dosage: 5 MG, QD
     Route: 048
     Dates: start: 20160229, end: 20160331
  7. AFINITOR [Suspect]
     Active Substance: EVEROLIMUS
     Dosage: 5 MG, QD
     Route: 048
     Dates: start: 20150909, end: 20151228

REACTIONS (7)
  - Thrombocytopenia [Recovered/Resolved]
  - C-reactive protein increased [Recovering/Resolving]
  - General physical health deterioration [Not Recovered/Not Resolved]
  - Pneumonia [Recovered/Resolved]
  - Pneumonia [Recovering/Resolving]
  - Leukopenia [Recovered/Resolved]
  - Dysphagia [Not Recovered/Not Resolved]

NARRATIVE: CASE EVENT DATE: 20150811
